FAERS Safety Report 17557806 (Version 1)
Quarter: 2020Q1

REPORT INFORMATION
  Report Type: Spontaneous
  Country: CA (occurrence: CA)
  Receive Date: 20200318
  Receipt Date: 20200318
  Transmission Date: 20200409
  Serious: Yes (Other)
  Sender: FDA-Public Use
  Company Number: CA-TEVA-2020-CA-1205513

PATIENT
  Sex: Female

DRUGS (8)
  1. ACTEMRA [Concomitant]
     Active Substance: TOCILIZUMAB
     Indication: NEUTROPENIA
  2. ENBREL [Concomitant]
     Active Substance: ETANERCEPT
     Indication: RHEUMATOID ARTHRITIS
     Dosage: 50 MILLIGRAM DAILY;
     Route: 058
  3. METHOTREXATE. [Suspect]
     Active Substance: METHOTREXATE
     Indication: RHEUMATOID ARTHRITIS
     Route: 058
  4. XELJANZ [Concomitant]
     Active Substance: TOFACITINIB CITRATE
     Indication: RHEUMATOID ARTHRITIS
     Dosage: 10 MILLIGRAM DAILY;
     Route: 048
  5. ACTEMRA [Concomitant]
     Active Substance: TOCILIZUMAB
     Indication: URINARY TRACT INFECTION
  6. HYDROXYCHLOROQUINE SULFATE. [Suspect]
     Active Substance: HYDROXYCHLOROQUINE SULFATE
     Indication: RHEUMATOID ARTHRITIS
     Route: 065
  7. ORENCIA [Concomitant]
     Active Substance: ABATACEPT
     Route: 042
  8. HUMIRA [Concomitant]
     Active Substance: ADALIMUMAB
     Route: 058

REACTIONS (10)
  - Influenza like illness [Unknown]
  - Musculoskeletal pain [Unknown]
  - Gait disturbance [Unknown]
  - Rheumatoid arthritis [Unknown]
  - Arthralgia [Unknown]
  - Nausea [Unknown]
  - Osteoarthritis [Unknown]
  - Headache [Unknown]
  - Musculoskeletal stiffness [Unknown]
  - Weight fluctuation [Unknown]
